FAERS Safety Report 8452323-7 (Version None)
Quarter: 2012Q2

REPORT INFORMATION
  Report Type: 
  Country: None (occurrence: None)
  Receive Date: 20120620
  Receipt Date: 20120608
  Transmission Date: 20120825
  Serious: Yes (Other)
  Sender: FDA-Public Use
  Company Number: US-ELI_LILLY_AND_COMPANY-US201203007993

PATIENT
  Age: 57 Year
  Sex: Female

DRUGS (6)
  1. NEXIUM [Concomitant]
     Dosage: 70 MG, UNKNOWN
     Route: 065
  2. FORTEO [Suspect]
     Indication: OSTEOPOROSIS
     Dosage: 20 UG, QD
     Route: 065
     Dates: start: 20110901
  3. BACLOFEN [Concomitant]
     Dosage: 0.5 MG, QID
     Route: 065
  4. LASIX [Concomitant]
     Dosage: 20 MG, UNKNOWN
     Route: 065
  5. CYMBALTA [Concomitant]
     Dosage: 60 MG, QD
     Route: 065
  6. TOPROL-XL [Concomitant]
     Dosage: 25 MG, UNKNOWN
     Route: 065

REACTIONS (1)
  - BREAST CANCER [None]
